FAERS Safety Report 11369024 (Version 10)
Quarter: 2016Q4

REPORT INFORMATION
  Report Type: Report from Study
  Country: IL (occurrence: IL)
  Receive Date: 20150812
  Receipt Date: 20161205
  Transmission Date: 20170206
  Serious: Yes (Hospitalization)
  Sender: FDA-Public Use
  Company Number: PHHY2013IL105847

PATIENT
  Age: 44 Year
  Sex: Female

DRUGS (1)
  1. GILENYA [Suspect]
     Active Substance: FINGOLIMOD HYDROCHLORIDE
     Indication: MULTIPLE SCLEROSIS
     Dosage: 0.5 MG, QD
     Route: 048
     Dates: start: 20130731

REACTIONS (32)
  - Stress [Unknown]
  - Pain [Not Recovered/Not Resolved]
  - Gait disturbance [Not Recovered/Not Resolved]
  - Hemiparesis [Not Recovered/Not Resolved]
  - Dyskinesia [Recovering/Resolving]
  - Arthralgia [Not Recovered/Not Resolved]
  - Joint swelling [Recovered/Resolved]
  - Hypoaesthesia [Not Recovered/Not Resolved]
  - Speech disorder [Not Recovered/Not Resolved]
  - Feeling hot [Recovering/Resolving]
  - Vomiting [Recovered/Resolved]
  - Fatigue [Not Recovered/Not Resolved]
  - Neck pain [Not Recovered/Not Resolved]
  - Headache [Recovering/Resolving]
  - Asthenia [Not Recovered/Not Resolved]
  - Pain in extremity [Recovering/Resolving]
  - Musculoskeletal stiffness [Unknown]
  - Multiple sclerosis relapse [Unknown]
  - Back pain [Recovering/Resolving]
  - Fall [Unknown]
  - Paraesthesia [Recovered/Resolved]
  - Dyspnoea [Not Recovered/Not Resolved]
  - Syncope [Recovered/Resolved]
  - Multiple sclerosis [Unknown]
  - Panic attack [Recovered/Resolved]
  - Vision blurred [Not Recovered/Not Resolved]
  - Anxiety [Recovered/Resolved]
  - Swelling face [Recovered/Resolved]
  - Paraesthesia [Not Recovered/Not Resolved]
  - Muscular weakness [Not Recovered/Not Resolved]
  - Arthritis [Unknown]
  - Skin discolouration [Unknown]

NARRATIVE: CASE EVENT DATE: 20140618
